FAERS Safety Report 8652237 (Version 3)
Quarter: 2012Q4

REPORT INFORMATION
  Report Type: 
  Country: US (occurrence: US)
  Receive Date: 20120706
  Receipt Date: 20121012
  Transmission Date: 20130627
  Serious: Yes (Hospitalization)
  Sender: FDA-Public Use
  Company Number: US-US-EMD SERONO, INC.-7144274

PATIENT
  Sex: Female

DRUGS (1)
  1. REBIF [Suspect]
     Indication: MULTIPLE SCLEROSIS
     Route: 058
     Dates: start: 20070629

REACTIONS (3)
  - Uterine haemorrhage [Unknown]
  - Scar [Unknown]
  - Middle ear effusion [Unknown]
